FAERS Safety Report 11829827 (Version 1)
Quarter: 2015Q4

REPORT INFORMATION
  Report Type: Spontaneous
  Country: US (occurrence: US)
  Receive Date: 20151212
  Receipt Date: 20151212
  Transmission Date: 20160305
  Serious: No
  Sender: FDA-Public Use
  Company Number: US-BAUSCH-BL-2015-003232

PATIENT
  Sex: Female
  Weight: 52.21 kg

DRUGS (2)
  1. DERMATOP [Suspect]
     Active Substance: PREDNICARBATE
     Indication: ECZEMA
     Route: 061
  2. CETAPHIL [Concomitant]
     Active Substance: AVOBENZONE\OCTOCRYLENE\TRICLOSAN
     Indication: PRODUCT USED FOR UNKNOWN INDICATION

REACTIONS (4)
  - Eczema [Unknown]
  - Product formulation issue [None]
  - Drug hypersensitivity [None]
  - Drug ineffective [Unknown]
